FAERS Safety Report 19020078 (Version 1)
Quarter: 2021Q1

REPORT INFORMATION
  Report Type: Spontaneous
  Country: US (occurrence: US)
  Receive Date: 20210317
  Receipt Date: 20210317
  Transmission Date: 20210420
  Serious: Yes (Other)
  Sender: FDA-Public Use
  Company Number: None

PATIENT
  Age: 72 Year
  Sex: Female

DRUGS (3)
  1. DOFETILIDE 500MCG TWICE DAILY [Concomitant]
  2. DILTIAZEM CD CAP 120MG/24HR [Suspect]
     Active Substance: DILTIAZEM
     Indication: ATRIAL FIBRILLATION
     Route: 048
  3. DILTIAZEM 60MG (IF NEEDED FOR BREAKTHROUGH) [Concomitant]

REACTIONS (4)
  - Product substitution issue [None]
  - Therapeutic response decreased [None]
  - Symptom recurrence [None]
  - Atrial fibrillation [None]

NARRATIVE: CASE EVENT DATE: 20210307
